FAERS Safety Report 6166401-9 (Version None)
Quarter: 2009Q2

REPORT INFORMATION
  Report Type: 
  Country: None (occurrence: None)
  Receive Date: 20090422
  Receipt Date: 20090422
  Transmission Date: 20091009
  Serious: Yes (Hospitalization)
  Sender: FDA-Public Use
  Company Number: None

PATIENT
  Age: 26 Year
  Sex: Female

DRUGS (1)
  1. IOHEXOL [Suspect]
     Indication: DRUG USE FOR UNKNOWN INDICATION
     Dosage: 75 CC'S (OMNIPAQUE)
     Dates: start: 20090326

REACTIONS (5)
  - EYE SWELLING [None]
  - INJECTION SITE PRURITUS [None]
  - LACRIMATION INCREASED [None]
  - OCULAR DISCOMFORT [None]
  - OCULAR HYPERAEMIA [None]
